FAERS Safety Report 5419749-7 (Version None)
Quarter: 2007Q3

REPORT INFORMATION
  Report Type: 
  Country: None (occurrence: None)
  Receive Date: 20070815
  Receipt Date: 20070730
  Transmission Date: 20080115
  Serious: Yes (Other)
  Sender: FDA-Public Use
  Company Number: VER_00068_2007

PATIENT
  Sex: Female

DRUGS (4)
  1. EPINEPHRINE [Suspect]
     Indication: ANAPHYLACTIC REACTION
     Dosage: 0.03 MG INATRAMUSCULAR/SUBCUTANEOUS
     Route: 058
  2. SINGULAIR [Concomitant]
  3. ADVAIR DISKUS 100/50 [Concomitant]
  4. BRICANYL [Concomitant]

REACTIONS (3)
  - ANAPHYLACTIC REACTION [None]
  - DEVICE FAILURE [None]
  - DRUG DOSE OMISSION [None]
